FAERS Safety Report 6795179-0 (Version None)
Quarter: 2010Q2

REPORT INFORMATION
  Report Type: 
  Country: None (occurrence: None)
  Receive Date: 20100625
  Receipt Date: 20100622
  Transmission Date: 20101027
  Serious: Yes (Hospitalization, Other)
  Sender: FDA-Public Use
  Company Number: JP-B.I. PHARMACEUTICALS,INC./RIDGEFIELD-2010-BP-05653NB

PATIENT
  Sex: Female
  Weight: 50.8 kg

DRUGS (10)
  1. MICARDIS [Suspect]
     Indication: HYPERTENSION
     Dosage: 40 MG
     Route: 048
     Dates: start: 20100204, end: 20100407
  2. NOVORAPID MIX [Suspect]
     Indication: DIABETES MELLITUS
     Dosage: 6 U
     Route: 058
     Dates: start: 20091029, end: 20100304
  3. CALBLOCK [Concomitant]
     Indication: HYPERTENSION
     Dosage: 16 MG
     Route: 048
     Dates: start: 20091029
  4. NORVASC [Concomitant]
     Indication: HYPERTENSION
     Dosage: 10 MG
     Route: 048
     Dates: start: 20091029
  5. DOXAZOSIN MESYLATE [Concomitant]
     Indication: HYPERTENSION
     Dosage: 2 MG
     Route: 048
     Dates: start: 20091029
  6. GASTER D [Concomitant]
     Indication: GASTRITIS
     Dosage: 20 MG
     Route: 048
     Dates: start: 20091029
  7. LASIX [Concomitant]
     Indication: OEDEMA DUE TO RENAL DISEASE
     Dosage: 80 MG
     Route: 048
     Dates: start: 20091029
  8. CRESTOR [Concomitant]
     Indication: HYPERLIPIDAEMIA
     Dosage: 2.5 MG
     Route: 048
     Dates: start: 20091029
  9. CALCIUM CARBONATE [Concomitant]
     Indication: HYPERPHOSPHATAEMIA
     Dosage: 3000 MG
     Route: 048
     Dates: start: 20091029
  10. RHYTHMY [Concomitant]
     Indication: INSOMNIA
     Dosage: 2 MG
     Route: 048
     Dates: start: 20091029

REACTIONS (6)
  - DIARRHOEA [None]
  - ENTEROCOLITIS [None]
  - HYPOGLYCAEMIA [None]
  - HYPOGLYCAEMIC COMA [None]
  - NASOPHARYNGITIS [None]
  - PANCREATIC NEOPLASM [None]
